FAERS Safety Report 11046503 (Version 1)
Quarter: 2015Q2

REPORT INFORMATION
  Report Type: Spontaneous
  Country: US (occurrence: US)
  Receive Date: 20150420
  Receipt Date: 20150420
  Transmission Date: 20150821
  Serious: No
  Sender: FDA-Public Use
  Company Number: US-TEVA-478241USA

PATIENT
  Sex: Male

DRUGS (1)
  1. NICOTINIC ACID [Suspect]
     Active Substance: NIACIN
     Dosage: TOOK ONLY ONE TABLET
     Route: 048
     Dates: start: 20140421, end: 20140421

REACTIONS (2)
  - Skin burning sensation [Recovered/Resolved]
  - Feeling hot [Recovered/Resolved]
